FAERS Safety Report 15498902 (Version 1)
Quarter: 2018Q4

REPORT INFORMATION
  Report Type: Spontaneous
  Country: JP (occurrence: JP)
  Receive Date: 20181015
  Receipt Date: 20181015
  Transmission Date: 20190205
  Serious: Yes (Other)
  Sender: FDA-Public Use
  Company Number: JP-CORDEN PHARMA LATINA S.P.A.-JP-2018COR000118

PATIENT
  Sex: Female

DRUGS (6)
  1. VINCRISTINE [Suspect]
     Active Substance: VINCRISTINE
     Indication: EWING^S SARCOMA
     Dosage: 1.5 MG PER SQUARE METER OF BODY-SURFACE AREA (MAXIMAL DOSE, 2 MG) EVERY TWO WEEKS
     Route: 065
  2. MESNA. [Suspect]
     Active Substance: MESNA
     Indication: PROPHYLAXIS
     Dosage: UNK
     Route: 065
  3. IFOSFAMIDE. [Suspect]
     Active Substance: IFOSFAMIDE
     Indication: EWING^S SARCOMA
     Dosage: 1800 MG PER SQUARE METER PER DAY FOR FIVE DAYS
     Route: 065
  4. RADIOTHERAPY [Suspect]
     Active Substance: RADIATION THERAPY
     Indication: EWING^S SARCOMA
     Dosage: 55.8 GRAY EQUIVALENT
  5. ETOPOSIDE. [Suspect]
     Active Substance: ETOPOSIDE
     Indication: EWING^S SARCOMA
     Dosage: 100 MG OF PER SQUARE METER PER DAY EVERY TWO WEEKS
     Route: 065
  6. CYCLOPHOSPHAMIDE. [Suspect]
     Active Substance: CYCLOPHOSPHAMIDE
     Indication: EWING^S SARCOMA
     Dosage: 1200 MG PER SQUARE METER EVERY TWO WEEKS
     Route: 065

REACTIONS (1)
  - Growth hormone deficiency [Recovered/Resolved]
